FAERS Safety Report 9656127 (Version 4)
Quarter: 2014Q2

REPORT INFORMATION
  Report Type: Spontaneous
  Country: JP (occurrence: JP)
  Receive Date: 20131030
  Receipt Date: 20140421
  Transmission Date: 20141212
  Serious: Yes (Hospitalization)
  Sender: FDA-Public Use
  Company Number: JP-JNJFOC-20131016029

PATIENT
  Age: 5 Decade
  Sex: Female

DRUGS (2)
  1. RISPERDAL CONSTA [Suspect]
     Indication: PRODUCT USED FOR UNKNOWN INDICATION
     Route: 030
     Dates: start: 20131017
  2. ZYPREXA [Concomitant]
     Route: 065

REACTIONS (2)
  - Hemiplegia [Recovered/Resolved]
  - Subdural haematoma [Unknown]
